FAERS Safety Report 12831466 (Version 1)
Quarter: 2016Q4

REPORT INFORMATION
  Report Type: Spontaneous
  Country: AT (occurrence: AT)
  Receive Date: 20161009
  Receipt Date: 20161009
  Transmission Date: 20170207
  Serious: Yes (Hospitalization)
  Sender: FDA-Public Use
  Company Number: AT-ABBVIE-16P-009-1745376-00

PATIENT
  Sex: Male

DRUGS (1)
  1. DUODOPA [Suspect]
     Active Substance: CARBIDOPA\LEVODOPA
     Indication: PARKINSON^S DISEASE
     Dosage: MD: 8ML??ED: 3ML??CR: 5.6ML/H
     Route: 050
     Dates: start: 20151103

REACTIONS (3)
  - Fall [Unknown]
  - Suicidal ideation [Unknown]
  - Laceration [Unknown]
